FAERS Safety Report 10072065 (Version 2)
Quarter: 2014Q2

REPORT INFORMATION
  Report Type: Spontaneous
  Country: BR (occurrence: BR)
  Receive Date: 20140411
  Receipt Date: 20140411
  Transmission Date: 20141212
  Serious: Yes (Other)
  Sender: FDA-Public Use
  Company Number: BR-AMGEN INC.-BRASP2014015589

PATIENT
  Sex: Female

DRUGS (6)
  1. ENBREL [Suspect]
     Indication: RHEUMATOID ARTHRITIS
     Dosage: 50 MG, WEEKLY
     Route: 058
     Dates: start: 20101215
  2. PREDNISONE [Concomitant]
     Dosage: 20 MG, DAILY
  3. METHOTREXATE [Concomitant]
     Dosage: 15 MG, WEEKLY
  4. FOLIC ACID [Concomitant]
     Dosage: 5 MG, QD
  5. ABBOTT CALCI [Concomitant]
     Dosage: UNK
  6. LOSARTAN [Concomitant]
     Dosage: 50 MG, BID

REACTIONS (8)
  - Lung disorder [Unknown]
  - Pulmonary cavitation [Unknown]
  - Pulmonary mass [Unknown]
  - Pulmonary calcification [Unknown]
  - Lymph node calcification [Unknown]
  - Odynophagia [Unknown]
  - Dysphonia [Unknown]
  - Interstitial lung disease [Unknown]
